FAERS Safety Report 23193061 (Version 3)
Quarter: 2025Q3

REPORT INFORMATION
  Report Type: Report from Study
  Country: US (occurrence: US)
  Receive Date: 20231116
  Receipt Date: 20250827
  Transmission Date: 20251020
  Serious: Yes (Other)
  Sender: TAKEDA
  Company Number: US-SHIRE-US201907318

PATIENT
  Age: 59 Year
  Sex: Female

DRUGS (4)
  1. LANADELUMAB [Suspect]
     Active Substance: LANADELUMAB
     Indication: Hereditary angioedema
     Dosage: UNK UNK, 2/MONTH
     Dates: start: 201811
  2. LANADELUMAB [Suspect]
     Active Substance: LANADELUMAB
     Dosage: UNK UNK, Q2WEEKS
  3. FIRAZYR [Suspect]
     Active Substance: ICATIBANT ACETATE
     Indication: Hereditary angioedema
  4. FIRAZYR [Suspect]
     Active Substance: ICATIBANT ACETATE

REACTIONS (4)
  - Upper respiratory tract infection [Unknown]
  - Hereditary angioedema [Unknown]
  - Stress [Unknown]
  - Headache [Unknown]

NARRATIVE: CASE EVENT DATE: 20190304
